FAERS Safety Report 6341788-2 (Version None)
Quarter: 2009Q3

REPORT INFORMATION
  Report Type: 
  Country: None (occurrence: None)
  Receive Date: 20090904
  Receipt Date: 20090828
  Transmission Date: 20100115
  Serious: Yes (Hospitalization)
  Sender: FDA-Public Use
  Company Number: US-ROCHE-653211

PATIENT
  Sex: Female
  Weight: 65.8 kg

DRUGS (2)
  1. CAPECITABINE [Suspect]
     Indication: COLORECTAL CANCER
     Dosage: STRENGTH: 500 MG TABS/150 MG TABS
     Route: 048
     Dates: start: 20090707, end: 20090801
  2. CAPECITABINE [Suspect]
     Dosage: LOWER DOSE
     Route: 048
     Dates: start: 20090824

REACTIONS (4)
  - ABDOMINAL PAIN [None]
  - DIARRHOEA [None]
  - HAEMATOCRIT DECREASED [None]
  - PYREXIA [None]
